FAERS Safety Report 5742952-3 (Version None)
Quarter: 2008Q2

REPORT INFORMATION
  Report Type: 
  Country: None (occurrence: None)
  Receive Date: 20080515
  Receipt Date: 20080515
  Transmission Date: 20081010
  Serious: No
  Sender: FDA-Public Use
  Company Number: None

PATIENT
  Age: 90 Year
  Sex: Female
  Weight: 66.6788 kg

DRUGS (1)
  1. DIGITEK BERTEK OR UDL [Suspect]
     Indication: HEART RATE IRREGULAR
     Dosage: 1 DAILY PO
     Route: 048
     Dates: start: 20060301, end: 20080108

REACTIONS (9)
  - ANOREXIA [None]
  - APNOEA [None]
  - ASTHENIA [None]
  - DIZZINESS [None]
  - DYSURIA [None]
  - FATIGUE [None]
  - HYPERSOMNIA [None]
  - LISTLESS [None]
  - WHEEZING [None]
